FAERS Safety Report 19737226 (Version 6)
Quarter: 2022Q2

REPORT INFORMATION
  Report Type: Report from Study
  Country: TW (occurrence: TW)
  Receive Date: 20210824
  Receipt Date: 20220423
  Transmission Date: 20220720
  Serious: Yes (Hospitalization, Other)
  Sender: FDA-Public Use
  Company Number: TW-BRISTOL-MYERS SQUIBB COMPANY-BMS-2021-082390

PATIENT
  Age: 64 Year
  Sex: Male
  Weight: 73 kg

DRUGS (15)
  1. NIVOLUMAB [Suspect]
     Active Substance: NIVOLUMAB
     Indication: Hepatocellular carcinoma
     Dosage: MG
     Route: 065
     Dates: start: 20210618, end: 20210618
  2. NIVOLUMAB [Suspect]
     Active Substance: NIVOLUMAB
     Dosage: MG
     Route: 065
     Dates: start: 20210806, end: 20210806
  3. IPILIMUMAB [Suspect]
     Active Substance: IPILIMUMAB
     Indication: Hepatocellular carcinoma
     Dosage: 219 MILLIGRAM
     Route: 065
     Dates: start: 20210618, end: 20210618
  4. NIVOLUMAB [Suspect]
     Active Substance: NIVOLUMAB
     Dosage: 73 MILLIGRAM
     Route: 065
     Dates: start: 20210618, end: 20210618
  5. METHYLPREDNISOLONE [Concomitant]
     Active Substance: METHYLPREDNISOLONE
     Indication: Product used for unknown indication
     Route: 042
     Dates: start: 20210730, end: 20210804
  6. METHYLPREDNISOLONE [Concomitant]
     Active Substance: METHYLPREDNISOLONE
     Route: 042
     Dates: start: 20210804, end: 20210805
  7. HYDROXYZINE [Concomitant]
     Active Substance: HYDROXYZINE HYDROCHLORIDE
     Indication: Product used for unknown indication
     Dosage: 50 MILLIGRAM
     Route: 048
     Dates: start: 20210804, end: 20210811
  8. HYDROXYZINE [Concomitant]
     Active Substance: HYDROXYZINE HYDROCHLORIDE
     Route: 048
     Dates: start: 20210813, end: 20210820
  9. PREDNISOLONE [Concomitant]
     Active Substance: PREDNISOLONE
     Indication: Product used for unknown indication
     Dosage: 40 MILLIGRAM
     Route: 048
     Dates: start: 20210804, end: 20210811
  10. PREDNISOLONE [Concomitant]
     Active Substance: PREDNISOLONE
     Dosage: 30 MILLIGRAM
     Route: 048
     Dates: start: 20210813, end: 20210820
  11. CLOBETASOL [Concomitant]
     Active Substance: CLOBETASOL
     Indication: Product used for unknown indication
     Dosage: 2 UNITS
     Route: 061
     Dates: start: 20210804, end: 20210811
  12. NINCORT [Concomitant]
     Indication: Product used for unknown indication
     Dosage: 2 UNIT NOT REPORTED
     Route: 061
     Dates: start: 20210817, end: 20210913
  13. VEMLIDY FC TAB 25 MG [Concomitant]
     Indication: Product used for unknown indication
     Dosage: 25 MILLIGRAM
     Route: 048
     Dates: start: 20210617
  14. FAMO FC 20MG [Concomitant]
     Indication: Product used for unknown indication
     Dosage: 20 MILLIGRAM
     Route: 048
     Dates: start: 20210720, end: 20210913
  15. TRIAMCINOLONE [Concomitant]
     Active Substance: TRIAMCINOLONE
     Indication: Product used for unknown indication
     Dosage: 2 UNITS
     Route: 061
     Dates: start: 20210804, end: 20210805

REACTIONS (1)
  - Stevens-Johnson syndrome [Recovered/Resolved with Sequelae]

NARRATIVE: CASE EVENT DATE: 20210817
